FAERS Safety Report 21163382 (Version 1)
Quarter: 2022Q3

REPORT INFORMATION
  Report Type: Spontaneous
  Country: None (occurrence: US)
  Receive Date: 20220802
  Receipt Date: 20220802
  Transmission Date: 20221027
  Serious: Yes (Other)
  Sender: FDA-Public Use
  Company Number: US-Breckenridge Pharmaceutical, Inc.-2131461

PATIENT
  Sex: Female

DRUGS (1)
  1. DULOXETINE [Suspect]
     Active Substance: DULOXETINE
     Route: 048

REACTIONS (4)
  - Nausea [Unknown]
  - Chest pain [Unknown]
  - Heart rate increased [Unknown]
  - Malaise [Unknown]
